FAERS Safety Report 11310060 (Version 2)
Quarter: 2015Q3

REPORT INFORMATION
  Report Type: Spontaneous
  Country: IN (occurrence: IN)
  Receive Date: 20150724
  Receipt Date: 20150807
  Transmission Date: 20151125
  Serious: Yes (Hospitalization)
  Sender: FDA-Public Use
  Company Number: IN-FRESENIUS KABI-FK201503570

PATIENT
  Age: 75 Year
  Sex: Male

DRUGS (1)
  1. METHOTREXATE (MANUFACTURER UNKNOWN) [Suspect]
     Active Substance: METHOTREXATE
     Indication: PSORIASIS
     Route: 048

REACTIONS (8)
  - Haematemesis [Recovered/Resolved]
  - Melaena [Recovered/Resolved]
  - Thrombocytopenia [Recovered/Resolved]
  - Leukopenia [Recovered/Resolved]
  - Stomatitis [Recovered/Resolved]
  - Eosinophilia [Recovered/Resolved]
  - Oral candidiasis [Recovered/Resolved]
  - Accidental overdose [Recovered/Resolved]
